FAERS Safety Report 4532703-2 (Version None)
Quarter: 2004Q4

REPORT INFORMATION
  Report Type: 
  Country: None (occurrence: None)
  Receive Date: 20041221
  Receipt Date: 20041207
  Transmission Date: 20050328
  Serious: Yes (Other)
  Sender: FDA-Public Use
  Company Number: DE-JNJFOC-20041201685

PATIENT
  Age: 36 Year
  Sex: Male

DRUGS (1)
  1. REMICADE [Suspect]
     Route: 042

REACTIONS (4)
  - BLINDNESS [None]
  - BLINDNESS UNILATERAL [None]
  - OPTIC NEURITIS RETROBULBAR [None]
  - VISUAL DISTURBANCE [None]
